FAERS Safety Report 6057557-7 (Version None)
Quarter: 2009Q1

REPORT INFORMATION
  Report Type: 
  Country: None (occurrence: None)
  Receive Date: 20090127
  Receipt Date: 20090127
  Transmission Date: 20090719
  Serious: Yes (Life-Threatening, Hospitalization)
  Sender: FDA-Public Use
  Company Number: None

PATIENT
  Age: 26 Year
  Sex: Female
  Weight: 63.5036 kg

DRUGS (2)
  1. YAZ [Suspect]
     Indication: DYSMENORRHOEA
     Dosage: 1 PILL -3MG/0.2MG- 1 TIME PER DAY PO
     Route: 048
     Dates: start: 20080501, end: 20081012
  2. YAZ [Suspect]
     Indication: MENSTRUAL DISORDER
     Dosage: 1 PILL -3MG/0.2MG- 1 TIME PER DAY PO
     Route: 048
     Dates: start: 20080501, end: 20081012

REACTIONS (1)
  - PULMONARY THROMBOSIS [None]
